FAERS Safety Report 8291613-8 (Version None)
Quarter: 2012Q2

REPORT INFORMATION
  Report Type: 
  Country: None (occurrence: None)
  Receive Date: 20120417
  Receipt Date: 20111018
  Transmission Date: 20120825
  Serious: No
  Sender: FDA-Public Use
  Company Number: AE-ASTRAZENECA-2011SE59772

PATIENT
  Age: 35 Year
  Sex: Female

DRUGS (2)
  1. NEXIUM [Suspect]
     Route: 048
  2. PRILOSEC [Suspect]
     Route: 048

REACTIONS (4)
  - MUSCLE SPASMS [None]
  - DRUG INEFFECTIVE [None]
  - HELICOBACTER INFECTION [None]
  - MALAISE [None]
